FAERS Safety Report 15307050 (Version 1)
Quarter: 2018Q3

REPORT INFORMATION
  Report Type: Spontaneous
  Country: US (occurrence: US)
  Receive Date: 20180810
  Receipt Date: 20180810
  Transmission Date: 20181010
  Serious: Yes (Hospitalization)
  Sender: FDA-Public Use
  Company Number: None

PATIENT
  Age: 60 Year
  Sex: Female
  Weight: 72.57 kg

DRUGS (1)
  1. SIMPONI [Suspect]
     Active Substance: GOLIMUMAB
     Indication: COLITIS ULCERATIVE
     Dosage: ONE PEN EVERY 4 WEEKS
     Route: 058
     Dates: start: 20180612, end: 20180808

REACTIONS (5)
  - Abdominal pain upper [None]
  - Pain in jaw [None]
  - Dyspnoea [None]
  - Heart rate increased [None]
  - Musculoskeletal pain [None]

NARRATIVE: CASE EVENT DATE: 20180801
